FAERS Safety Report 5644906-4 (Version None)
Quarter: 2008Q1

REPORT INFORMATION
  Report Type: 
  Country: None (occurrence: None)
  Receive Date: 20080229
  Receipt Date: 20071016
  Transmission Date: 20080703
  Serious: No
  Sender: FDA-Public Use
  Company Number: A0688032A

PATIENT
  Age: 64 Year
  Sex: Female

DRUGS (7)
  1. VALTREX [Suspect]
     Dosage: 1G TWICE PER DAY
     Route: 048
  2. LIPITOR [Concomitant]
  3. ZESTORETIC [Concomitant]
  4. ASPIRIN [Concomitant]
  5. GLUCOPHAGE [Concomitant]
  6. ZOLOFT [Concomitant]
  7. PAMELOR [Concomitant]

REACTIONS (7)
  - EAR DISCOMFORT [None]
  - GINGIVAL DISCOLOURATION [None]
  - LIP HAEMORRHAGE [None]
  - LIP SWELLING [None]
  - LYMPH NODE PAIN [None]
  - ORAL HERPES [None]
  - SCAB [None]
